FAERS Safety Report 9205969 (Version 1)
Quarter: 2013Q2

REPORT INFORMATION
  Report Type: Spontaneous
  Country: US (occurrence: None)
  Receive Date: 20130401
  Receipt Date: 20130401
  Transmission Date: 20140414
  Serious: No
  Sender: FDA-Public Use
  Company Number: None

PATIENT
  Age: 64 Year
  Sex: Male
  Weight: 92 kg

DRUGS (1)
  1. RISPERIDONE [Suspect]
     Route: 048
     Dates: start: 20120527, end: 20130115

REACTIONS (1)
  - Blood prolactin increased [None]
